FAERS Safety Report 6082837-9 (Version None)
Quarter: 2009Q1

REPORT INFORMATION
  Report Type: 
  Country: None (occurrence: None)
  Receive Date: 20090218
  Receipt Date: 20090206
  Transmission Date: 20090719
  Serious: Yes (Other)
  Sender: FDA-Public Use
  Company Number: US-ELI_LILLY_AND_COMPANY-US200902001713

PATIENT
  Sex: Female

DRUGS (3)
  1. BYETTA [Suspect]
     Indication: TYPE 2 DIABETES MELLITUS
     Dosage: UNK, UNKNOWN
     Dates: start: 20080101
  2. BYETTA [Suspect]
     Dosage: UNK, UNKNOWN
  3. BYETTA [Suspect]
     Dosage: UNK, UNKNOWN
     Dates: end: 20090201

REACTIONS (4)
  - NAUSEA [None]
  - PANCREATITIS [None]
  - VOMITING [None]
  - WEIGHT DECREASED [None]
